FAERS Safety Report 5720977-1 (Version None)
Quarter: 2008Q2

REPORT INFORMATION
  Report Type: 
  Country: None (occurrence: None)
  Receive Date: 20080429
  Receipt Date: 20080421
  Transmission Date: 20081010
  Serious: Yes (Hospitalization)
  Sender: FDA-Public Use
  Company Number: US-BRISTOL-MYERS SQUIBB COMPANY-14168496

PATIENT
  Age: 56 Year
  Sex: Female

DRUGS (9)
  1. PRINIVIL [Suspect]
     Indication: HYPERTENSION
     Route: 048
     Dates: start: 20070731
  2. PRINIVIL [Suspect]
     Indication: DIABETES MELLITUS
     Route: 048
     Dates: start: 20070731
  3. METFORMIN HCL [Suspect]
     Indication: TYPE 2 DIABETES MELLITUS
     Route: 048
     Dates: start: 20070731
  4. COUMADIN [Concomitant]
  5. LANTUS [Concomitant]
  6. LASIX [Concomitant]
  7. OXYCONTIN [Concomitant]
  8. ZANTAC [Concomitant]
  9. ZOCOR [Concomitant]

REACTIONS (2)
  - LACTIC ACIDOSIS [None]
  - RENAL FAILURE ACUTE [None]
